FAERS Safety Report 12053699 (Version 1)
Quarter: 2016Q1

REPORT INFORMATION
  Report Type: Spontaneous
  Country: GB (occurrence: GB)
  Receive Date: 20160209
  Receipt Date: 20160209
  Transmission Date: 20160526
  Serious: Yes (Other)
  Sender: FDA-Public Use
  Company Number: GB-TEVA-631272ACC

PATIENT
  Sex: Male

DRUGS (1)
  1. WARFARIN [Suspect]
     Active Substance: WARFARIN

REACTIONS (5)
  - Haemoptysis [Unknown]
  - Abdominal discomfort [Unknown]
  - Haematochezia [Unknown]
  - Skin ulcer [Not Recovered/Not Resolved]
  - Blood urine present [Unknown]
